FAERS Safety Report 25572024 (Version 3)
Quarter: 2025Q3

REPORT INFORMATION
  Report Type: Spontaneous
  Country: US (occurrence: US)
  Receive Date: 20250717
  Receipt Date: 20250827
  Transmission Date: 20251020
  Serious: Yes (Hospitalization, Other)
  Sender: PFIZER
  Company Number: US-PFIZER INC-202400297642

PATIENT
  Age: 81 Year
  Sex: Male
  Weight: 111.58 kg

DRUGS (2)
  1. IBRANCE [Suspect]
     Active Substance: PALBOCICLIB
     Indication: Breast cancer metastatic
     Route: 048
     Dates: start: 202407
  2. FULVESTRANT [Concomitant]
     Active Substance: FULVESTRANT
     Indication: Hormone therapy
     Dosage: 1 INJECTION IN EACH HIP ONCE A MONTH
     Dates: start: 202407

REACTIONS (6)
  - Pneumonia [Unknown]
  - Breast cancer [Not Recovered/Not Resolved]
  - Malignant neoplasm progression [Not Recovered/Not Resolved]
  - Pulmonary oedema [Unknown]
  - Upper respiratory tract congestion [Unknown]
  - Productive cough [Unknown]

NARRATIVE: CASE EVENT DATE: 20250401
